FAERS Safety Report 7883570-0 (Version None)
Quarter: 2011Q4

REPORT INFORMATION
  Report Type: 
  Country: None (occurrence: None)
  Receive Date: 20111102
  Receipt Date: 20111021
  Transmission Date: 20120403
  Serious: Yes (Hospitalization)
  Sender: FDA-Public Use
  Company Number: US-BAYER-2011-033404

PATIENT
  Age: 17 Year
  Sex: Female
  Weight: 102.49 kg

DRUGS (8)
  1. ZOLOFT [Concomitant]
  2. HYDROCODONE BITARTRATE AND ACETAMINOPHEN [Concomitant]
     Indication: PAIN
     Dosage: UNK UNK, PRN
  3. YASMIN [Suspect]
     Dosage: UNK
     Dates: start: 20060101, end: 20070101
  4. TRILEPTAL [Concomitant]
  5. CEPHALEXIN [Concomitant]
     Dosage: 500 MG, BID
     Route: 048
  6. BUSPIRONE [Concomitant]
  7. RISPERDAL [Concomitant]
  8. SERAQUEL XR [Concomitant]

REACTIONS (4)
  - INJURY [None]
  - CHOLECYSTITIS [None]
  - PAIN [None]
  - CHOLECYSTITIS CHRONIC [None]
